FAERS Safety Report 26042985 (Version 1)
Quarter: 2025Q4

REPORT INFORMATION
  Report Type: Spontaneous
  Country: PR (occurrence: PR)
  Receive Date: 20251113
  Receipt Date: 20251113
  Transmission Date: 20260118
  Serious: No
  Sender: ANI
  Company Number: PR-ANIPHARMA-2025-PR-000093

PATIENT
  Age: 68 Year
  Sex: Female
  Weight: 104.33 kg

DRUGS (5)
  1. CORTICOTROPIN [Suspect]
     Active Substance: CORTICOTROPIN
     Indication: Multiple sclerosis
     Dosage: 80 IU DAILY
     Route: 058
     Dates: start: 20250906, end: 20250916
  2. BACLOFEN [Concomitant]
     Active Substance: BACLOFEN
     Route: 048
  3. HYDROCHLOROTHIAZIDE\LOSARTAN POTASSIUM [Concomitant]
     Active Substance: HYDROCHLOROTHIAZIDE\LOSARTAN POTASSIUM
     Route: 048
  4. CATAFLAM [Concomitant]
     Active Substance: DICLOFENAC POTASSIUM
     Route: 048
  5. Fluorometholone 0.01 %-- [Concomitant]

REACTIONS (2)
  - Swelling face [Unknown]
  - Peripheral swelling [Unknown]
